FAERS Safety Report 25549899 (Version 1)
Quarter: 2025Q3

REPORT INFORMATION
  Report Type: Spontaneous
  Country: US (occurrence: US)
  Receive Date: 20250714
  Receipt Date: 20250714
  Transmission Date: 20251021
  Serious: No
  Sender: NOVO NORDISK
  Company Number: US-NOVOPROD-1368621

PATIENT
  Sex: Male

DRUGS (1)
  1. SEMAGLUTIDE [Suspect]
     Active Substance: SEMAGLUTIDE
     Indication: Weight decreased
     Route: 058

REACTIONS (4)
  - Accident at work [Unknown]
  - Joint swelling [Unknown]
  - Urticaria [Unknown]
  - Counterfeit product administered [Unknown]

NARRATIVE: CASE EVENT DATE: 20250101
